FAERS Safety Report 7112632-0 (Version None)
Quarter: 2010Q4

REPORT INFORMATION
  Report Type: 
  Country: None (occurrence: None)
  Receive Date: 20101119
  Receipt Date: 20101105
  Transmission Date: 20110411
  Serious: Yes (Death, Other)
  Sender: FDA-Public Use
  Company Number: GXKR2010GB12561

PATIENT
  Age: 63 Year
  Sex: Female
  Weight: 65 kg

DRUGS (4)
  1. FLUOXETINE [Suspect]
     Indication: DEPRESSION
     Dosage: 60 MG, QD
     Route: 048
     Dates: start: 20090114, end: 20100226
  2. WARFARIN SODIUM [Interacting]
     Route: 065
  3. TRYPTOPHAN, L- [Interacting]
     Indication: DEPRESSION
     Dosage: 500 MG, TID
     Route: 065
     Dates: start: 20090114, end: 20100225
  4. SINEMET CR [Interacting]
     Indication: PARKINSONISM
     Dosage: 0.5 DF, BID
     Route: 048
     Dates: start: 20100115, end: 20100225

REACTIONS (7)
  - AGITATION [None]
  - BALANCE DISORDER [None]
  - DECREASED APPETITE [None]
  - DIZZINESS [None]
  - DRUG TOXICITY [None]
  - FEELING ABNORMAL [None]
  - WEIGHT DECREASED [None]
